FAERS Safety Report 4685473-1 (Version None)
Quarter: 2005Q2

REPORT INFORMATION
  Report Type: 
  Country: None (occurrence: None)
  Receive Date: 20050531
  Receipt Date: 20050321
  Transmission Date: 20051028
  Serious: No
  Sender: FDA-Public Use
  Company Number: WAES 0503USA03685

PATIENT
  Age: 74 Year
  Sex: Female

DRUGS (2)
  1. ZETIA [Suspect]
     Dosage: 10 MG/PO
     Route: 048
     Dates: start: 20050307, end: 20050307
  2. PRAVACHOL [Concomitant]

REACTIONS (1)
  - BLOOD GLUCOSE DECREASED [None]
